FAERS Safety Report 18550843 (Version 2)
Quarter: 2020Q4

REPORT INFORMATION
  Report Type: Spontaneous
  Country: US (occurrence: US)
  Receive Date: 20201126
  Receipt Date: 20201214
  Transmission Date: 20210114
  Serious: No
  Sender: FDA-Public Use
  Company Number: US-PFIZER INC-2020466352

PATIENT
  Age: 53 Year
  Sex: Female
  Weight: 38.56 kg

DRUGS (4)
  1. DESVENLAFAXINE SUCCINATE MONOHYDRATE [Suspect]
     Active Substance: DESVENLAFAXINE SUCCINATE
     Indication: DEPRESSION
     Dosage: 1 TABLET, 1X/DAY (ONE ORALLY PILL A DAY IN THE MORNING; DOES NOT RECALL DOSE)
     Route: 048
     Dates: start: 2016
  2. ADMELOG [Concomitant]
     Active Substance: INSULIN LISPRO
     Indication: DIABETES MELLITUS
     Dosage: UNK, 4X/DAY (5-15 UNITS A SHOT IN STOMACH FOUR TIMES A DAY WITH MEALS)
     Dates: start: 2016
  3. DESVENLAFAXINE SUCCINATE MONOHYDRATE [Suspect]
     Active Substance: DESVENLAFAXINE SUCCINATE
     Indication: ANXIETY
  4. LANTUS [Concomitant]
     Active Substance: INSULIN GLARGINE
     Indication: BLOOD GLUCOSE INCREASED
     Dosage: 14 IU, 1X/DAY (A SHOT EVERY NIGHT)
     Dates: start: 2016

REACTIONS (2)
  - Anxiety [Unknown]
  - Drug ineffective [Unknown]
